FAERS Safety Report 15637447 (Version 1)
Quarter: 2018Q4

REPORT INFORMATION
  Report Type: Spontaneous
  Country: US (occurrence: US)
  Receive Date: 20181120
  Receipt Date: 20181120
  Transmission Date: 20190205
  Serious: No
  Sender: FDA-Public Use
  Company Number: US-JNJFOC-20180531703

PATIENT
  Age: 77 Year
  Sex: Female
  Weight: 62 kg

DRUGS (2)
  1. IMBRUVICA [Concomitant]
     Active Substance: IBRUTINIB
     Indication: CHRONIC LYMPHOCYTIC LEUKAEMIA
     Route: 065
     Dates: start: 2018, end: 201805
  2. IMBRUVICA [Suspect]
     Active Substance: IBRUTINIB
     Indication: CHRONIC LYMPHOCYTIC LEUKAEMIA
     Route: 065
     Dates: start: 201805

REACTIONS (4)
  - Defaecation urgency [Not Recovered/Not Resolved]
  - Incorrect dose administered [Unknown]
  - Abdominal discomfort [Not Recovered/Not Resolved]
  - Off label use [Unknown]

NARRATIVE: CASE EVENT DATE: 201805
